FAERS Safety Report 9264838 (Version 1)
Quarter: 2013Q2

REPORT INFORMATION
  Report Type: Spontaneous
  Country: US (occurrence: None)
  Receive Date: 20130430
  Receipt Date: 20130430
  Transmission Date: 20140414
  Serious: Yes (Life-Threatening, Hospitalization, Disabling, Congenital Anomaly)
  Sender: FDA-Public Use
  Company Number: None

PATIENT
  Age: 26 Year
  Sex: Male
  Weight: 106.6 kg

DRUGS (1)
  1. RISPERIDONE [Suspect]
     Indication: ASPERGER^S DISORDER
     Dosage: 1-MG  ONE TAB TWO TIMES A DAY BY MOUTH
     Route: 048
     Dates: start: 20080101, end: 20121230

REACTIONS (9)
  - Brain injury [None]
  - Convulsion [None]
  - Anxiety [None]
  - Aggression [None]
  - Tremor [None]
  - Insomnia [None]
  - Amnesia [None]
  - Urinary tract disorder [None]
  - Thyroid disorder [None]
